FAERS Safety Report 6695240-5 (Version None)
Quarter: 2010Q2

REPORT INFORMATION
  Report Type: 
  Country: None (occurrence: None)
  Receive Date: 20100423
  Receipt Date: 20100420
  Transmission Date: 20101027
  Serious: Yes (Death)
  Sender: FDA-Public Use
  Company Number: US-GILEAD-2010-0028534

PATIENT
  Sex: Female
  Weight: 72.64 kg

DRUGS (17)
  1. LETAIRIS [Suspect]
     Indication: PULMONARY ARTERIAL HYPERTENSION
     Route: 048
     Dates: start: 20090423, end: 20100411
  2. OXYGEN [Concomitant]
  3. ASPIRIN [Concomitant]
  4. FUROSEMIDE [Concomitant]
  5. VASOTEC [Concomitant]
  6. CARVEDILOL [Concomitant]
  7. CRESTOR [Concomitant]
  8. ADVAIR DISKUS 100/50 [Concomitant]
  9. XOPENEX [Concomitant]
  10. SPIRIVA [Concomitant]
  11. SYMBICORT [Concomitant]
  12. PROAIR HFA [Concomitant]
  13. SINGULAIR [Concomitant]
  14. METHYLPREDNISOLONE [Concomitant]
  15. NEXIUM [Concomitant]
  16. MULTI-VITAMIN [Concomitant]
  17. IRON [Concomitant]

REACTIONS (2)
  - CARDIAC ARREST [None]
  - VENTRICULAR FIBRILLATION [None]
